FAERS Safety Report 6357554-8 (Version None)
Quarter: 2009Q3

REPORT INFORMATION
  Report Type: 
  Country: None (occurrence: None)
  Receive Date: 20090916
  Receipt Date: 20090904
  Transmission Date: 20100115
  Serious: No
  Sender: FDA-Public Use
  Company Number: PHHY2009GB31896

PATIENT
  Sex: Female

DRUGS (4)
  1. CLOZARIL [Suspect]
     Indication: SCHIZOPHRENIA
     Dosage: UNK
     Route: 048
     Dates: start: 20080917
  2. BECLOMETASONE [Concomitant]
     Indication: ASTHMA
     Dosage: 200 UG, BID
  3. LANSOPRAZOLE [Concomitant]
     Indication: EPIGASTRIC DISCOMFORT
     Dosage: 15 MG, QD
     Route: 048
  4. LACTULOSE [Concomitant]
     Indication: CONSTIPATION
     Dosage: 15 MG, BID
     Route: 048

REACTIONS (2)
  - CANDIDIASIS [None]
  - DRUG INEFFECTIVE [None]
